FAERS Safety Report 24189173 (Version 2)
Quarter: 2024Q3

REPORT INFORMATION
  Report Type: Spontaneous
  Country: US (occurrence: US)
  Receive Date: 20240808
  Receipt Date: 20240910
  Transmission Date: 20241017
  Serious: No
  Sender: Alora Pharma
  Company Number: US-TRIGEN LABORATORIES-2024ALO00369

PATIENT
  Age: 50 Year
  Sex: Male

DRUGS (1)
  1. METHYLPHENIDATE HYDROCHLORIDE [Suspect]
     Active Substance: METHYLPHENIDATE HYDROCHLORIDE
     Indication: Attention deficit hyperactivity disorder
     Dosage: UNK
     Route: 048

REACTIONS (1)
  - Agitation [Unknown]
